FAERS Safety Report 10406718 (Version 4)
Quarter: 2014Q4

REPORT INFORMATION
  Report Type: Spontaneous
  Country: US (occurrence: US)
  Receive Date: 20140825
  Receipt Date: 20141208
  Transmission Date: 20150528
  Serious: Yes (Hospitalization)
  Sender: FDA-Public Use
  Company Number: US-BAYER-2014-126302

PATIENT
  Age: 29 Year
  Sex: Female
  Weight: 70.3 kg

DRUGS (1)
  1. MIRENA [Suspect]
     Active Substance: LEVONORGESTREL
     Indication: CONTRACEPTION
     Dosage: 20 MCG/24HR, CONT
     Route: 015
     Dates: start: 20100519, end: 20130806

REACTIONS (15)
  - Anxiety [None]
  - Device use error [None]
  - Polymenorrhoea [None]
  - Menorrhagia [None]
  - Uterine perforation [None]
  - Device dislocation [None]
  - Emotional distress [None]
  - Mood swings [None]
  - Injury [None]
  - Depression [None]
  - Device issue [None]
  - Pain [None]
  - Fatigue [None]
  - Feeling abnormal [None]
  - Abdominal pain lower [None]

NARRATIVE: CASE EVENT DATE: 2010
